FAERS Safety Report 6784520-0 (Version None)
Quarter: 2010Q2

REPORT INFORMATION
  Report Type: 
  Country: None (occurrence: None)
  Receive Date: 20100622
  Receipt Date: 20100616
  Transmission Date: 20101027
  Serious: Yes (Other)
  Sender: FDA-Public Use
  Company Number: FR-BRISTOL-MYERS SQUIBB COMPANY-15152630

PATIENT
  Age: 60 Year
  Sex: Female

DRUGS (11)
  1. TAXOL [Suspect]
     Indication: CERVIX CARCINOMA
     Dosage: DOSAGE:03MAR10,10MAR10,17MAR10,24MAR10,14APR10,28APR10.
     Route: 042
     Dates: start: 20100303
  2. ENDOXAN [Suspect]
  3. CARBOPLATIN [Suspect]
     Indication: CERVIX CARCINOMA
     Route: 042
     Dates: end: 20100428
  4. METHOTREXATE [Suspect]
  5. BRICANYL [Concomitant]
  6. ATROVENT [Concomitant]
  7. MOPRAL [Concomitant]
  8. KALEORID [Concomitant]
  9. LEXOMIL [Concomitant]
  10. SOLUPRED [Concomitant]
  11. HEPTAMINOL [Concomitant]

REACTIONS (2)
  - NEUROPATHY PERIPHERAL [None]
  - ORTHOSTATIC HYPOTENSION [None]
